FAERS Safety Report 5927438-5 (Version None)
Quarter: 2008Q4

REPORT INFORMATION
  Report Type: 
  Country: None (occurrence: None)
  Receive Date: 20081022
  Receipt Date: 20081022
  Transmission Date: 20090506
  Serious: Yes (Other)
  Sender: FDA-Public Use
  Company Number: None

PATIENT
  Sex: Female
  Weight: 54.4316 kg

DRUGS (2)
  1. CYMBALTA [Suspect]
     Indication: ANXIETY
     Dosage: 60MGM 1 DAILY ORALLY
     Route: 048
     Dates: start: 20080815, end: 20080929
  2. CYMBALTA [Suspect]
     Indication: NEURALGIA
     Dosage: 60MGM 1 DAILY ORALLY
     Route: 048
     Dates: start: 20080815, end: 20080929

REACTIONS (25)
  - ABDOMINAL PAIN UPPER [None]
  - CONSTIPATION [None]
  - COORDINATION ABNORMAL [None]
  - DYSPNOEA [None]
  - DYSURIA [None]
  - FATIGUE [None]
  - HAEMORRHAGIC DIATHESIS [None]
  - HALLUCINATION [None]
  - HEART RATE INCREASED [None]
  - HEART RATE IRREGULAR [None]
  - HYPERHIDROSIS [None]
  - HYPOAESTHESIA [None]
  - INCREASED TENDENCY TO BRUISE [None]
  - INSOMNIA [None]
  - MICTURITION DISORDER [None]
  - MUSCULAR WEAKNESS [None]
  - NAUSEA [None]
  - NIGHTMARE [None]
  - PALPITATIONS [None]
  - PARAESTHESIA [None]
  - PRURITUS [None]
  - RESTLESSNESS [None]
  - SOMNOLENCE [None]
  - TREMOR [None]
  - YAWNING [None]
